FAERS Safety Report 9189778 (Version 1)
Quarter: 2013Q1

REPORT INFORMATION
  Report Type: Spontaneous
  Country: US (occurrence: None)
  Receive Date: 20120703
  Receipt Date: 20120703
  Transmission Date: 20140127
  Serious: No
  Sender: FDA-Public Use
  Company Number: PHEH2012US009656

PATIENT
  Age: 48 Year
  Sex: Female

DRUGS (6)
  1. GILENYA [Suspect]
     Indication: MULTIPLE SCLEROSIS
     Route: 048
  2. BACLOFEN (BACLOFEN) [Concomitant]
  3. SYNTHROID (LEVOTHYROXINE SODIUM) [Concomitant]
  4. B COMPLEX (NICOTIMIDE,PYRODOXINE HYDROCHLORIDE,RIBOFLAVIN, THIAMINE HYDROCHLORIDE) [Concomitant]
  5. CALCIUM (CALCIUM) [Concomitant]
  6. VITAMIN D (ERGOCALCIFEROL) [Concomitant]

REACTIONS (1)
  - Appendicectomy [None]
